FAERS Safety Report 22155213 (Version 1)
Quarter: 2023Q1

REPORT INFORMATION
  Report Type: Spontaneous
  Country: CN (occurrence: CN)
  Receive Date: 20230330
  Receipt Date: 20230330
  Transmission Date: 20230417
  Serious: Yes (Other)
  Sender: FDA-Public Use
  Company Number: CN-Accord-306133

PATIENT
  Age: 46 Year
  Sex: Male

DRUGS (6)
  1. CARBOPLATIN [Suspect]
     Active Substance: CARBOPLATIN
     Indication: Small cell lung cancer limited stage
     Dosage: AUC 5, DAY 1 EVERY 3 WEEKS
     Dates: start: 2021
  2. ETOPOSIDE [Suspect]
     Active Substance: ETOPOSIDE
     Indication: Small cell lung cancer limited stage
     Dosage: (100 MG/M2, DAYS 1-3) EVERY 3 WEEKS
     Dates: start: 2021
  3. TISLELIZUMAB [Suspect]
     Active Substance: TISLELIZUMAB
     Indication: Small cell lung cancer limited stage
     Dosage: (200 MG, DAY 1) EVERY 3 WEEKS
     Dates: start: 2021
  4. CARBOPLATIN [Suspect]
     Active Substance: CARBOPLATIN
     Indication: Lung carcinoma cell type unspecified stage III
     Dosage: AUC 5, DAY 1 EVERY 3 WEEKS
     Dates: start: 2021
  5. ETOPOSIDE [Suspect]
     Active Substance: ETOPOSIDE
     Indication: Lung carcinoma cell type unspecified stage III
     Dosage: (100 MG/M2, DAYS 1-3) EVERY 3 WEEKS
     Dates: start: 2021
  6. TISLELIZUMAB [Suspect]
     Active Substance: TISLELIZUMAB
     Indication: Lung carcinoma cell type unspecified stage III
     Dosage: (200 MG, DAY 1) EVERY 3 WEEKS
     Dates: start: 2021

REACTIONS (1)
  - Hypothyroidism [Unknown]
